FAERS Safety Report 4911763-0 (Version None)
Quarter: 2006Q1

REPORT INFORMATION
  Report Type: 
  Country: None (occurrence: None)
  Receive Date: 20060213
  Receipt Date: 20060213
  Transmission Date: 20060701
  Serious: Yes (Hospitalization)
  Sender: FDA-Public Use
  Company Number: None

PATIENT
  Age: 79 Year
  Sex: Male
  Weight: 71.6683 kg

DRUGS (2)
  1. SERTRALINE [Suspect]
     Indication: DEPRESSION
     Dosage: 25 MG  DAILY  PO
     Route: 048
     Dates: start: 20050613, end: 20060127
  2. CHLORTHALIDONE [Suspect]
     Indication: HYPERTENSION
     Dosage: 50 MG  DAILY  PO
     Route: 048
     Dates: start: 20020601, end: 20060127

REACTIONS (2)
  - HYPONATRAEMIA [None]
  - INAPPROPRIATE ANTIDIURETIC HORMONE SECRETION [None]
